FAERS Safety Report 16113290 (Version 1)
Quarter: 2019Q1

REPORT INFORMATION
  Report Type: Spontaneous
  Country: US (occurrence: US)
  Receive Date: 20190325
  Receipt Date: 20190325
  Transmission Date: 20190418
  Serious: Yes (Other)
  Sender: FDA-Public Use
  Company Number: US-AKORN PHARMACEUTICALS-2019AKN00224

PATIENT
  Age: 34 Year
  Sex: Male
  Weight: 103.56 kg

DRUGS (5)
  1. MYORISAN [Suspect]
     Active Substance: ISOTRETINOIN
     Indication: ACNE CONGLOBATA
     Dosage: 40 MG, 1X/DAY
     Dates: start: 20180809, end: 20190121
  2. MYORISAN [Suspect]
     Active Substance: ISOTRETINOIN
     Indication: ACNE CONGLOBATA
     Dosage: 60 UNK
     Dates: start: 20181016, end: 201811
  3. MYORISAN [Suspect]
     Active Substance: ISOTRETINOIN
     Dosage: 30 UNK
     Dates: end: 20190121
  4. MYORISAN [Suspect]
     Active Substance: ISOTRETINOIN
     Dosage: UNK
     Dates: start: 2018
  5. MYORISAN [Suspect]
     Active Substance: ISOTRETINOIN
     Indication: ACNE CONGLOBATA
     Dosage: 40 MG, 1X/DAY
     Dates: start: 20180508, end: 20190121

REACTIONS (3)
  - Anger [Unknown]
  - Off label use [Recovered/Resolved]
  - Depression [Unknown]

NARRATIVE: CASE EVENT DATE: 2018
